FAERS Safety Report 5214284-3 (Version None)
Quarter: 2007Q1

REPORT INFORMATION
  Report Type: 
  Country: None (occurrence: None)
  Receive Date: 20070122
  Receipt Date: 20070111
  Transmission Date: 20070707
  Serious: Yes (Other)
  Sender: FDA-Public Use
  Company Number: US-GILEAD-2007-0011027

PATIENT
  Sex: Female

DRUGS (2)
  1. TRUVADA [Suspect]
     Indication: HIV INFECTION
  2. CIPROFLOXACIN [Suspect]
     Indication: OSTEOMYELITIS

REACTIONS (3)
  - BLOOD CREATININE INCREASED [None]
  - CLOSTRIDIAL INFECTION [None]
  - CLOSTRIDIUM DIFFICILE COLITIS [None]
